FAERS Safety Report 5824692-5 (Version None)
Quarter: 2008Q3

REPORT INFORMATION
  Report Type: 
  Country: None (occurrence: None)
  Receive Date: 20080722
  Receipt Date: 20080710
  Transmission Date: 20090109
  Serious: Yes (Hospitalization)
  Sender: FDA-Public Use
  Company Number: 2008BI008536

PATIENT
  Age: 49 Year
  Sex: Female

DRUGS (7)
  1. AVONEX [Suspect]
     Indication: MULTIPLE SCLEROSIS
     Dosage: 30 UG;QW;IM
     Route: 030
     Dates: start: 20010817, end: 20030101
  2. AVONEX [Suspect]
     Indication: MULTIPLE SCLEROSIS
     Dosage: 30 UG;QW;IM
     Route: 030
     Dates: start: 20030101
  3. NAPROSYN [Concomitant]
  4. VESICARE [Concomitant]
  5. IV STEROIDS [Concomitant]
  6. TYLENOL [Concomitant]
  7. 4-AMINOPURINE [Concomitant]

REACTIONS (4)
  - BLINDNESS [None]
  - OPTIC NEURITIS [None]
  - OPTIC NEUROPATHY [None]
  - ROAD TRAFFIC ACCIDENT [None]
